FAERS Safety Report 4463086-4 (Version None)
Quarter: 2004Q3

REPORT INFORMATION
  Report Type: 
  Country: None (occurrence: None)
  Receive Date: 20040928
  Receipt Date: 20040913
  Transmission Date: 20050211
  Serious: Yes (Other)
  Sender: FDA-Public Use
  Company Number: 209023

PATIENT
  Age: 34 Year
  Sex: Female

DRUGS (1)
  1. RAPTIVA [Suspect]
     Indication: PSORIASIS
     Dosage: 0.9 ML, 1 WEEK, SUBCUTANEOUS
     Route: 058
     Dates: start: 20040101, end: 20040801

REACTIONS (11)
  - ALOPECIA [None]
  - ARTHRALGIA [None]
  - INFECTION [None]
  - JAW DISORDER [None]
  - JOINT SWELLING [None]
  - LYMPHADENOPATHY [None]
  - OEDEMA PERIPHERAL [None]
  - PSORIASIS [None]
  - RASH SCALY [None]
  - SKIN BLEEDING [None]
  - URTICARIA [None]
